FAERS Safety Report 5570280-8 (Version None)
Quarter: 2008Q1

REPORT INFORMATION
  Report Type: 
  Country: None (occurrence: None)
  Receive Date: 20071219
  Receipt Date: 20071219
  Transmission Date: 20080703
  Serious: No
  Sender: FDA-Public Use
  Company Number: None

PATIENT
  Sex: Female
  Weight: 75.2971 kg

DRUGS (2)
  1. LISINOPRIL AND HYDROCHLOROTHIAZIDE [Suspect]
     Indication: HYPERTENSION
     Dosage: 20/25MG QD PO
     Route: 048
     Dates: start: 20040101
  2. GUANFACINE HYDROCHLORIDE [Suspect]
     Indication: HYPERTENSION
     Dosage: 2MG QD PO
     Route: 048
     Dates: start: 20040101

REACTIONS (2)
  - FATIGUE [None]
  - PHARMACEUTICAL PRODUCT COMPLAINT [None]
